FAERS Safety Report 4465491-9 (Version None)
Quarter: 2004Q4

REPORT INFORMATION
  Report Type: 
  Country: None (occurrence: None)
  Receive Date: 20041001
  Receipt Date: 20040912
  Transmission Date: 20050328
  Serious: Yes (Other)
  Sender: FDA-Public Use
  Company Number: SA20041165

PATIENT
  Age: 11 Month
  Sex: Female

DRUGS (1)
  1. XENADERM (BALSAM PERU, TRYPSIN, CASTOR OIL) [Suspect]
     Indication: DERMATITIS DIAPER
     Dates: start: 20040911

REACTIONS (7)
  - ANXIETY [None]
  - CRYING [None]
  - DISCOMFORT [None]
  - DYSPNOEA [None]
  - HEART RATE INCREASED [None]
  - MEDICATION ERROR [None]
  - RESPIRATORY DISORDER [None]
